FAERS Safety Report 4367522-3 (Version None)
Quarter: 2004Q2

REPORT INFORMATION
  Report Type: 
  Country: None (occurrence: None)
  Receive Date: 20040601
  Receipt Date: 20030521
  Transmission Date: 20050107
  Serious: Yes (Hospitalization)
  Sender: FDA-Public Use
  Company Number: FR-ROCHE-338412

PATIENT
  Age: 50 Year
  Sex: Female
  Weight: 44 kg

DRUGS (5)
  1. DACLIZUMAB [Suspect]
     Route: 042
     Dates: start: 20030324, end: 20030324
  2. DACLIZUMAB [Suspect]
     Route: 042
     Dates: start: 20030408, end: 20030408
  3. MYCOPHENOLATE MOFETIL [Suspect]
     Route: 048
     Dates: start: 20030324
  4. NEORAL [Suspect]
     Route: 048
     Dates: start: 20030328
  5. STEROIDS [Suspect]
     Route: 048
     Dates: start: 20030324, end: 20040308

REACTIONS (4)
  - CYTOMEGALOVIRUS INFECTION [None]
  - DEHYDRATION [None]
  - KIDNEY TRANSPLANT REJECTION [None]
  - RENAL FAILURE ACUTE [None]
